FAERS Safety Report 5565751-4 (Version None)
Quarter: 2007Q4

REPORT INFORMATION
  Report Type: 
  Country: None (occurrence: None)
  Receive Date: 20071218
  Receipt Date: 20071206
  Transmission Date: 20080405
  Serious: Yes (Hospitalization, Other)
  Sender: FDA-Public Use
  Company Number: FR-GILEAD-2007-0014555

PATIENT
  Sex: Female
  Weight: 60 kg

DRUGS (4)
  1. VIREAD [Suspect]
     Indication: HIV INFECTION
     Route: 048
     Dates: start: 20030701, end: 20071024
  2. VIDEX [Suspect]
     Indication: HIV INFECTION
     Route: 048
     Dates: start: 20030701, end: 20071024
  3. EPIVIR [Concomitant]
     Indication: HIV INFECTION
     Route: 048
     Dates: start: 20030701, end: 20071024
  4. REYATAZ [Concomitant]
     Indication: HIV INFECTION
     Route: 048
     Dates: start: 20030701, end: 20071024

REACTIONS (7)
  - BONE DENSITY DECREASED [None]
  - FANCONI SYNDROME ACQUIRED [None]
  - FOOT FRACTURE [None]
  - HYPOPHOSPHATAEMIA [None]
  - NEUROPATHY PERIPHERAL [None]
  - PANCREATITIS ACUTE [None]
  - UNEVALUABLE EVENT [None]
